FAERS Safety Report 4385385-7 (Version None)
Quarter: 2004Q2

REPORT INFORMATION
  Report Type: 
  Country: None (occurrence: None)
  Receive Date: 20040622
  Receipt Date: 20040421
  Transmission Date: 20050107
  Serious: Yes (Other)
  Sender: FDA-Public Use
  Company Number: A03200401233

PATIENT
  Age: 30 Year
  Sex: Female
  Weight: 58.9676 kg

DRUGS (2)
  1. AMBIEN [Suspect]
     Indication: INSOMNIA
     Dosage: 10 MG HS-ORAL
     Route: 048
     Dates: start: 20040112, end: 20040312
  2. ZOLOFT [Suspect]
     Indication: DEPRESSION
     Dosage: 200 MG -ORAL
     Route: 048
     Dates: start: 20040112, end: 20040112

REACTIONS (8)
  - AMNESIA [None]
  - BALANCE DISORDER [None]
  - CONVULSION [None]
  - DELUSION [None]
  - FALL [None]
  - HALLUCINATION, VISUAL [None]
  - INSOMNIA [None]
  - RESTLESSNESS [None]
